FAERS Safety Report 25916082 (Version 1)
Quarter: 2025Q4

REPORT INFORMATION
  Report Type: Spontaneous
  Country: US (occurrence: US)
  Receive Date: 20251013
  Receipt Date: 20251013
  Transmission Date: 20260118
  Serious: No
  Sender: AMGEN
  Company Number: US-AMGEN-USASP2025201281

PATIENT
  Age: 64 Year
  Sex: Male

DRUGS (2)
  1. MVASI [Suspect]
     Active Substance: BEVACIZUMAB-AWWB
     Indication: Hepatocellular carcinoma
     Dosage: 1800 MG (2 X 100MG AND 4 X 400MG)
     Route: 065
  2. TECENTRIQ [Concomitant]
     Active Substance: ATEZOLIZUMAB
     Dosage: UNK
     Dates: start: 20240516

REACTIONS (1)
  - Blood potassium increased [Unknown]

NARRATIVE: CASE EVENT DATE: 20251007
